FAERS Safety Report 9142759 (Version 1)
Quarter: 2013Q1

REPORT INFORMATION
  Report Type: Spontaneous
  Country: US (occurrence: US)
  Receive Date: 20130306
  Receipt Date: 20130306
  Transmission Date: 20140127
  Serious: No
  Sender: FDA-Public Use
  Company Number: US-ENDO PHARMACEUTICALS INC.-OPIR20110072

PATIENT
  Sex: Female

DRUGS (3)
  1. OPANA [Suspect]
     Indication: FIBROMYALGIA
     Dosage: UNKNOWN
     Route: 048
  2. OXYCODONE HCL [Suspect]
     Indication: FIBROMYALGIA
     Dosage: UNKNOWN
     Route: 048
  3. LYRICA [Suspect]
     Indication: FIBROMYALGIA
     Dosage: UNKNOWN
     Route: 065

REACTIONS (5)
  - Migraine [Unknown]
  - Local swelling [Recovered/Resolved]
  - Depression [Unknown]
  - Anxiety [Unknown]
  - Insomnia [Unknown]
